FAERS Safety Report 10266063 (Version 1)
Quarter: 2014Q2

REPORT INFORMATION
  Report Type: Report from Study
  Country: DE (occurrence: DE)
  Receive Date: 20140627
  Receipt Date: 20140627
  Transmission Date: 20141212
  Serious: Yes (Other)
  Sender: FDA-Public Use
  Company Number: DE-ABBVIE-14P-062-1250739-00

PATIENT
  Age: 42 Year
  Sex: Female
  Weight: 110 kg

DRUGS (1)
  1. HUMIRA [Suspect]
     Indication: RHEUMATOID ARTHRITIS
     Route: 058
     Dates: start: 20140522, end: 20140522

REACTIONS (4)
  - Oral mucosal blistering [Recovered/Resolved]
  - Rectal haemorrhage [Recovered/Resolved]
  - Abscess oral [Recovered/Resolved]
  - Drug intolerance [Recovered/Resolved]
